FAERS Safety Report 16253702 (Version 1)
Quarter: 2019Q2

REPORT INFORMATION
  Report Type: Other
  Country: US (occurrence: US)
  Receive Date: 20190430
  Receipt Date: 20190430
  Transmission Date: 20190711
  Serious: Yes (Other)
  Sender: FDA-Public Use
  Company Number: US-PHARMACEUTICS INTERNATIONAL, INC.-2066415

PATIENT
  Sex: Male

DRUGS (3)
  1. DOPAMINE [Concomitant]
     Active Substance: DOPAMINE\DOPAMINE HYDROCHLORIDE
     Route: 065
  2. HYDROCORTISONE. [Suspect]
     Active Substance: HYDROCORTISONE
     Indication: PRODUCT USED FOR UNKNOWN INDICATION
     Route: 065
  3. NITRIC OXIDE. [Concomitant]
     Active Substance: NITRIC OXIDE
     Route: 065

REACTIONS (1)
  - Hypertrophic cardiomyopathy [Recovering/Resolving]
